FAERS Safety Report 10006188 (Version 2)
Quarter: 2014Q2

REPORT INFORMATION
  Report Type: Spontaneous
  Country: US (occurrence: US)
  Receive Date: 20140313
  Receipt Date: 20140501
  Transmission Date: 20141212
  Serious: Yes (Other)
  Sender: FDA-Public Use
  Company Number: US-ASTELLAS-2014US002342

PATIENT
  Age: 79 Year
  Sex: Male

DRUGS (1)
  1. XTANDI [Suspect]
     Indication: PROSTATE CANCER METASTATIC
     Route: 048
     Dates: start: 20140205, end: 20140206

REACTIONS (4)
  - Chest pain [Recovered/Resolved]
  - Oedema [Recovered/Resolved]
  - Cystitis [Unknown]
  - Off label use [Unknown]
